FAERS Safety Report 5950171-0 (Version None)
Quarter: 2008Q4

REPORT INFORMATION
  Report Type: 
  Country: None (occurrence: None)
  Receive Date: 20081112
  Receipt Date: 20081106
  Transmission Date: 20090506
  Serious: Yes (Other)
  Sender: FDA-Public Use
  Company Number: US-BAYER-200813686BCC

PATIENT
  Sex: Female
  Weight: 54 kg

DRUGS (7)
  1. ASPIRIN [Suspect]
     Indication: BLOOD CHOLESTEROL INCREASED
     Dosage: TOTAL DAILY DOSE: 81 MG  UNIT DOSE: 81 MG
     Route: 048
     Dates: start: 20080601
  2. ZOCOR [Suspect]
     Indication: BLOOD CHOLESTEROL INCREASED
  3. VYTORIN [Suspect]
     Indication: BLOOD CHOLESTEROL INCREASED
  4. MEVACOR [Concomitant]
  5. CHOLESTAWAY [Concomitant]
  6. LIPITOR [Concomitant]
  7. ZETIA [Concomitant]

REACTIONS (1)
  - LOSS OF CONSCIOUSNESS [None]
